FAERS Safety Report 23559351 (Version 5)
Quarter: 2024Q2

REPORT INFORMATION
  Report Type: Spontaneous
  Country: NO (occurrence: NO)
  Receive Date: 20240223
  Receipt Date: 20240426
  Transmission Date: 20240716
  Serious: No
  Sender: FDA-Public Use
  Company Number: NO-PFIZER INC-202400034756

PATIENT
  Age: 48 Year
  Sex: Female

DRUGS (1)
  1. ENBREL [Suspect]
     Active Substance: BENZYL ALCOHOL\ETANERCEPT
     Indication: Sacroiliitis
     Dosage: 50 MG, WEEKLY
     Route: 058

REACTIONS (3)
  - Injury associated with device [Unknown]
  - Product confusion [Unknown]
  - Off label use [Unknown]

NARRATIVE: CASE EVENT DATE: 20240101
